FAERS Safety Report 23942612 (Version 1)
Quarter: 2024Q2

REPORT INFORMATION
  Report Type: Report from Study
  Country: US (occurrence: US)
  Receive Date: 20240605
  Receipt Date: 20240605
  Transmission Date: 20240716
  Serious: Yes (Hospitalization)
  Sender: FDA-Public Use
  Company Number: US-TAIHOP-2024-005380

PATIENT
  Age: 63 Year
  Sex: Female
  Weight: 60.33 kg

DRUGS (9)
  1. LONSURF [Suspect]
     Active Substance: TIPIRACIL HYDROCHLORIDE\TRIFLURIDINE
     Indication: Colon cancer
     Dosage: CURRENT CYCLE 4
     Route: 048
  2. CAMPTOSAR [Concomitant]
     Active Substance: IRINOTECAN HYDROCHLORIDE
     Indication: Product used for unknown indication
     Dosage: INTRAVENOUS SOLUTION
     Route: 042
  3. ADRUCIL [Concomitant]
     Active Substance: FLUOROURACIL
     Indication: Product used for unknown indication
     Dosage: INTRAVENOUS SOLUTION
     Route: 042
  4. FLUOROURACIL [Concomitant]
     Active Substance: FLUOROURACIL
     Indication: Product used for unknown indication
     Dosage: INTRAVENOUS SOLUTION
     Route: 042
  5. LEUCOVORIN CALCIUM [Concomitant]
     Active Substance: LEUCOVORIN CALCIUM
     Indication: Product used for unknown indication
  6. OGIVRI [Concomitant]
     Active Substance: TRASTUZUMAB-DKST
     Indication: Product used for unknown indication
     Dosage: INTRAVENOUS SOLUTION
     Route: 042
  7. SOLU-MEDROL PF [Concomitant]
     Indication: Product used for unknown indication
     Dosage: PF; INJECTION SOLUTION
  8. ZIRABEV [Concomitant]
     Active Substance: BEVACIZUMAB-BVZR
     Indication: Product used for unknown indication
     Dosage: INTRAVENOUS SOLUTION
     Route: 042
  9. ZOFRAN [Concomitant]
     Active Substance: ONDANSETRON HYDROCHLORIDE
     Indication: Product used for unknown indication

REACTIONS (2)
  - Seizure [Unknown]
  - Inappropriate schedule of product administration [Unknown]
